FAERS Safety Report 5647205-X (Version None)
Quarter: 2008Q1

REPORT INFORMATION
  Report Type: 
  Country: None (occurrence: None)
  Receive Date: 20080228
  Receipt Date: 20080228
  Transmission Date: 20080703
  Serious: Yes (Hospitalization)
  Sender: FDA-Public Use
  Company Number: None

PATIENT
  Age: 39 Year
  Sex: Male
  Weight: 55 kg

DRUGS (2)
  1. TOBI [Suspect]
     Indication: LUNG INFECTION PSEUDOMONAL
     Dosage: TOBI 200 MG BID INHAL
     Route: 055
     Dates: start: 20080219, end: 20080226
  2. VANCOMYCIN [Suspect]
     Indication: THORACOTOMY
     Dosage: VANCOMYCIN 1 GM BID IV
     Route: 042
     Dates: start: 20080219, end: 20080222

REACTIONS (1)
  - BLOOD CREATININE INCREASED [None]
